FAERS Safety Report 4455994-5 (Version None)
Quarter: 2004Q3

REPORT INFORMATION
  Report Type: 
  Country: None (occurrence: None)
  Receive Date: 20040920
  Receipt Date: 20040909
  Transmission Date: 20050211
  Serious: Yes (Other)
  Sender: FDA-Public Use
  Company Number: HQWYE985210SEP04

PATIENT
  Age: 42 Year
  Sex: Male

DRUGS (1)
  1. GEMTUZUMAB OZOGAMICIN (GEMTUZUMAB OZOGAMICIN, INJECTION) [Suspect]
     Indication: ACUTE PROMYELOCYTIC LEUKAEMIA
     Dosage: 9 MG/M^2 1X PER 1 DAY
     Route: 042
     Dates: start: 20020301

REACTIONS (4)
  - HEPATOTOXICITY [None]
  - PANCYTOPENIA [None]
  - PYREXIA [None]
  - VENOOCCLUSIVE LIVER DISEASE [None]
